FAERS Safety Report 8620005-4 (Version None)
Quarter: 2012Q3

REPORT INFORMATION
  Report Type: 
  Country: None (occurrence: None)
  Receive Date: 20120824
  Receipt Date: 20120820
  Transmission Date: 20120928
  Serious: Yes (Hospitalization)
  Sender: FDA-Public Use
  Company Number: PHHY2012IE053210

PATIENT
  Sex: Female

DRUGS (1)
  1. GILENYA [Suspect]
     Indication: RELAPSING-REMITTING MULTIPLE SCLEROSIS
     Dosage: 0.5 MG, UNK
     Route: 048
     Dates: start: 20120517, end: 20120627

REACTIONS (4)
  - COGNITIVE DISORDER [None]
  - VISUAL IMPAIRMENT [None]
  - FATIGUE [None]
  - DISTURBANCE IN ATTENTION [None]
